FAERS Safety Report 7318967-0 (Version None)
Quarter: 2011Q1

REPORT INFORMATION
  Report Type: 
  Country: None (occurrence: None)
  Receive Date: 20110215
  Receipt Date: 20110131
  Transmission Date: 20110831
  Serious: Yes (Other)
  Sender: FDA-Public Use
  Company Number: 2010005183

PATIENT
  Age: 55 Year
  Sex: Female

DRUGS (4)
  1. TARCEVA (ERLOTINIB) (TABET) (ERLOTINIB) [Suspect]
     Indication: LUNG ADENOCARCINOMA METASTATIC
     Dosage: 150 MG, QD, ORAL
     Route: 048
     Dates: start: 20091111
  2. BEVACIZUMAB [Suspect]
     Indication: LUNG ADENOCARCINOMA METASTATIC
     Dosage: 893 MG, QD, EVERY THREE WEEKS, INTRAVENOUS; 954 MG, QD, EVERY THREE WEEKS, INTRAVENOUS
     Route: 042
     Dates: start: 20091111, end: 20101111
  3. BEVACIZUMAB [Suspect]
     Indication: LUNG ADENOCARCINOMA METASTATIC
     Dosage: 893 MG, QD, EVERY THREE WEEKS, INTRAVENOUS; 954 MG, QD, EVERY THREE WEEKS, INTRAVENOUS
     Route: 042
     Dates: start: 20091111, end: 20101111
  4. ZOMETA [Concomitant]

REACTIONS (4)
  - DEMYELINATION [None]
  - MUSCULAR WEAKNESS [None]
  - PARAESTHESIA [None]
  - GAIT DISTURBANCE [None]
